FAERS Safety Report 16122795 (Version 2)
Quarter: 2019Q2

REPORT INFORMATION
  Report Type: Spontaneous
  Country: DE (occurrence: DE)
  Receive Date: 20190327
  Receipt Date: 20190414
  Transmission Date: 20190711
  Serious: Yes (Other)
  Sender: FDA-Public Use
  Company Number: DE-AMGEN-DEUSP2019045134

PATIENT
  Age: 40 Year
  Sex: Male

DRUGS (2)
  1. TALIMOGENE LAHERPAREPVEC [Suspect]
     Active Substance: TALIMOGENE LAHERPAREPVEC
     Indication: MALIGNANT MELANOMA
     Dosage: UNK UNK, CYCLICAL
     Route: 065
     Dates: start: 201701
  2. INTERFERON [Suspect]
     Active Substance: INTERFERON
     Indication: MALIGNANT MELANOMA
     Dosage: UNK, 3 X 3 MIU
     Route: 065
     Dates: start: 201210

REACTIONS (2)
  - Off label use [Unknown]
  - Metastatic malignant melanoma [Recovered/Resolved]

NARRATIVE: CASE EVENT DATE: 2017
